FAERS Safety Report 11419735 (Version 1)
Quarter: 2015Q3

REPORT INFORMATION
  Report Type: Spontaneous
  Country: CA (occurrence: CA)
  Receive Date: 20150826
  Receipt Date: 20150826
  Transmission Date: 20151125
  Serious: Yes (Other)
  Sender: FDA-Public Use
  Company Number: CA-SA-2015SA127019

PATIENT
  Sex: Female

DRUGS (3)
  1. LANTUS [Suspect]
     Active Substance: INSULIN GLARGINE
     Indication: TYPE 2 DIABETES MELLITUS
     Route: 065
  2. LANTUS [Suspect]
     Active Substance: INSULIN GLARGINE
     Indication: TYPE 2 DIABETES MELLITUS
     Route: 065
  3. LYRICA [Suspect]
     Active Substance: PREGABALIN
     Route: 065
     Dates: end: 201508

REACTIONS (5)
  - Weight increased [Recovering/Resolving]
  - Drug withdrawal syndrome [Unknown]
  - Blood glucose increased [Recovering/Resolving]
  - Weight decreased [Unknown]
  - Blood glucose decreased [Unknown]
